FAERS Safety Report 11757481 (Version 1)
Quarter: 2015Q4

REPORT INFORMATION
  Report Type: Spontaneous
  Country: IT (occurrence: IT)
  Receive Date: 20151120
  Receipt Date: 20151120
  Transmission Date: 20160304
  Serious: Yes (Other)
  Sender: FDA-Public Use
  Company Number: IT-TEVA-609346ACC

PATIENT
  Age: 43 Year
  Sex: Female
  Weight: 56 kg

DRUGS (4)
  1. FLUOROURACILE TEVA - 1 G/20 ML SOLUZIONE PER INFUSIONE [Suspect]
     Active Substance: FLUOROURACIL
     Indication: BREAST CANCER
     Dosage: 970 MG CYCLICAL; FORM STRENGTH: 1 G/20 ML
     Route: 042
     Dates: start: 20150805, end: 20151103
  2. ENDOXAN BAXTER - 50 MG COMPRESSE RIVESTITE - BAXTER S.P.A . [Suspect]
     Active Substance: CYCLOPHOSPHAMIDE
     Indication: BREAST CANCER
     Dosage: 160 MILLIGRAM DAILY;
     Route: 048
     Dates: start: 20150805, end: 20151103
  3. NEXIUM [Concomitant]
     Active Substance: ESOMEPRAZOLE MAGNESIUM
     Indication: GASTRITIS
     Route: 048
  4. METOTRESSATO TEVA - 25 MG/ML SOLUZIONE INIETTABILE [Suspect]
     Active Substance: METHOTREXATE SODIUM
     Indication: BREAST CANCER
     Dosage: 65 MG CYCLICAL
     Route: 042
     Dates: start: 20150805, end: 20151103

REACTIONS (5)
  - Aspartate aminotransferase increased [None]
  - Neutropenia [Recovering/Resolving]
  - Leukopenia [Recovering/Resolving]
  - Transaminases increased [Recovering/Resolving]
  - Alanine aminotransferase increased [None]

NARRATIVE: CASE EVENT DATE: 20150902
